FAERS Safety Report 9394444 (Version 2)
Quarter: 2013Q3

REPORT INFORMATION
  Report Type: Spontaneous
  Country: US (occurrence: US)
  Receive Date: 20130711
  Receipt Date: 20130805
  Transmission Date: 20140515
  Serious: No
  Sender: FDA-Public Use
  Company Number: US-PFIZER INC-2013201710

PATIENT
  Age: 79 Year
  Sex: Female

DRUGS (4)
  1. AMLODIPINE BESILATE [Suspect]
     Dosage: 5 MG, 2X/DAY
     Route: 048
     Dates: start: 20080825
  2. DICYCLOMINE [Concomitant]
     Dosage: 1 DF, (Q 6 H) AS NEEDED
     Route: 048
  3. ZETIA [Concomitant]
     Dosage: 1 DF, DAILY
     Route: 048
  4. AZATHIOPRINE [Concomitant]
     Dosage: 2 DF, 1X/DAY (HS)
     Route: 048

REACTIONS (1)
  - Abdominal discomfort [Recovered/Resolved]
